FAERS Safety Report 8578975-9 (Version None)
Quarter: 2012Q3

REPORT INFORMATION
  Report Type: 
  Country: None (occurrence: None)
  Receive Date: 20120808
  Receipt Date: 20120803
  Transmission Date: 20120928
  Serious: Yes (Other)
  Sender: FDA-Public Use
  Company Number: BR-PFIZER INC-2012190357

PATIENT
  Sex: Male
  Weight: 81 kg

DRUGS (2)
  1. SUTENT [Suspect]
     Indication: RENAL CANCER
     Dosage: UNK
     Route: 048
     Dates: end: 20120601
  2. INSULIN [Concomitant]
     Dosage: UNK

REACTIONS (5)
  - SWELLING [None]
  - CARDIAC DISORDER [None]
  - YELLOW SKIN [None]
  - PULMONARY OEDEMA [None]
  - DYSPNOEA [None]
